FAERS Safety Report 17442359 (Version 1)
Quarter: 2020Q1

REPORT INFORMATION
  Report Type: Spontaneous
  Country: ES (occurrence: ES)
  Receive Date: 20200220
  Receipt Date: 20200220
  Transmission Date: 20200409
  Serious: Yes (Hospitalization)
  Sender: FDA-Public Use
  Company Number: ES-JNJFOC-20200224483

PATIENT
  Age: 74 Year
  Sex: Male

DRUGS (5)
  1. XOTERNA [Concomitant]
     Indication: BRONCHITIS CHRONIC
     Dosage: 1 DOSAGE FORM
     Route: 055
     Dates: start: 20181120
  2. TRAMADOL HYDROCHLORIDE. [Suspect]
     Active Substance: TRAMADOL HYDROCHLORIDE
     Indication: BACK PAIN
     Dosage: 100 MILLIGRAM, EVERY 8 HRS
     Route: 042
     Dates: start: 20190412, end: 20190416
  3. ALOPURINOL [Concomitant]
     Active Substance: ALLOPURINOL
     Indication: GOUT
     Dosage: 100 MILLIGRAM, 1/DAY
     Route: 048
     Dates: start: 20121003
  4. CITALOPRAM [Concomitant]
     Active Substance: CITALOPRAM HYDROBROMIDE
     Indication: PERSISTENT DEPRESSIVE DISORDER
     Dosage: 10 MILLIGRAM
     Route: 048
     Dates: start: 20170621
  5. OMEPRAZOL CUVE [Concomitant]
     Indication: PRODUCT USED FOR UNKNOWN INDICATION
     Dosage: 20 MILLIGRAM, 1/DAY
     Route: 048
     Dates: start: 20100218

REACTIONS (2)
  - Confusional state [Recovered/Resolved]
  - Haematoma [Recovered/Resolved]

NARRATIVE: CASE EVENT DATE: 20190412
